FAERS Safety Report 8939847 (Version 1)
Quarter: 2012Q4

REPORT INFORMATION
  Report Type: 
  Country: US (occurrence: US)
  Receive Date: 20121203
  Receipt Date: 20121203
  Transmission Date: 20130627
  Serious: Yes (Death, Hospitalization)
  Sender: FDA-Public Use
  Company Number: US-RANBAXY-2012US-62495

PATIENT
  Age: 75 Year
  Sex: Male

DRUGS (5)
  1. FLUCONAZOLE [Suspect]
     Indication: ANTIFUNGAL PROPHYLAXIS
     Dosage: 200 mg
     Route: 065
  2. VORICONAZOLE [Suspect]
     Indication: ANTIFUNGAL PROPHYLAXIS
     Dosage: 200 mg, bid
     Route: 065
  3. LEVOFLOXACIN [Suspect]
     Indication: ANTIFUNGAL PROPHYLAXIS
     Dosage: 500 mg
     Route: 065
  4. CYTARABINE [Concomitant]
     Indication: CHEMOTHERAPY
     Dosage: UNK
     Route: 065
  5. FLUDARABINE [Concomitant]
     Indication: CHEMOTHERAPY
     Dosage: UNK
     Route: 065

REACTIONS (5)
  - Arthritis fungal [Unknown]
  - Candidiasis [Unknown]
  - Septic shock [Fatal]
  - Drug ineffective [Unknown]
  - Bronchopneumonia [Unknown]
